FAERS Safety Report 7096000-6 (Version None)
Quarter: 2010Q4

REPORT INFORMATION
  Report Type: 
  Country: None (occurrence: None)
  Receive Date: 20101111
  Receipt Date: 20090507
  Transmission Date: 20110411
  Serious: No
  Sender: FDA-Public Use
  Company Number: US-KINGPHARMUSA00001-K200900576

PATIENT

DRUGS (1)
  1. BICILLIN L-A [Suspect]
     Dosage: 1200000 IU, SINGLE
     Route: 030
     Dates: start: 20090501, end: 20090501

REACTIONS (1)
  - INJECTION SITE ABSCESS [None]
